FAERS Safety Report 5056750-X (Version None)
Quarter: 2006Q2

REPORT INFORMATION
  Report Type: 
  Country: None (occurrence: None)
  Receive Date: 20060616
  Receipt Date: 20060502
  Transmission Date: 20061013
  Serious: No
  Sender: FDA-Public Use
  Company Number: YPA20060008

PATIENT
  Age: 77 Year
  Sex: Female
  Weight: 47.3 kg

DRUGS (3)
  1. VESICARE [Suspect]
     Indication: NOCTURIA
     Dosage: 5 MG, UID/QD, ORAL
     Route: 048
     Dates: start: 20051101
  2. QUININE SULFATE [Concomitant]
  3. FOSAMAX [Concomitant]

REACTIONS (3)
  - CONSTIPATION [None]
  - DRUG INEFFECTIVE [None]
  - DRY MOUTH [None]
